FAERS Safety Report 7213312-3 (Version None)
Quarter: 2010Q4

REPORT INFORMATION
  Report Type: 
  Country: None (occurrence: None)
  Receive Date: 20101126
  Receipt Date: 20091005
  Transmission Date: 20110411
  Serious: Yes (Other)
  Sender: FDA-Public Use
  Company Number: WAES 0705USA02645

PATIENT
  Age: 67 Year
  Sex: Female

DRUGS (4)
  1. FOSAMAX [Suspect]
     Indication: OSTEOPOROSIS
     Dosage: 5 MG/DAILY/PO, 10 MG/DAILY/PO,70 MG/WKY/PO
     Route: 048
     Dates: start: 20000505, end: 20010822
  2. FOSAMAX [Suspect]
     Indication: OSTEOPOROSIS
     Dosage: 5 MG/DAILY/PO, 10 MG/DAILY/PO,70 MG/WKY/PO
     Route: 048
     Dates: start: 20010822, end: 20060226
  3. FOSAMAX [Suspect]
     Indication: OSTEOPOROSIS
     Dosage: 5 MG/DAILY/PO, 10 MG/DAILY/PO,70 MG/WKY/PO
     Route: 048
     Dates: start: 19990225
  4. LIPITOR [Concomitant]

REACTIONS (4)
  - HAEMATURIA [None]
  - HYPERTENSION [None]
  - OSTEONECROSIS [None]
  - RECTAL HAEMORRHAGE [None]
